FAERS Safety Report 7052577-8 (Version None)
Quarter: 2010Q4

REPORT INFORMATION
  Report Type: 
  Country: None (occurrence: None)
  Receive Date: 20101019
  Receipt Date: 20101013
  Transmission Date: 20110411
  Serious: Yes (Other)
  Sender: FDA-Public Use
  Company Number: BR-PFIZER INC-2010062709

PATIENT
  Age: 44 Year
  Sex: Female
  Weight: 96 kg

DRUGS (2)
  1. CHAMPIX [Suspect]
     Indication: TOBACCO ABUSE
     Dosage: 0.5 MG, EVERY 12 HOURS
     Route: 048
     Dates: start: 20100514
  2. SERTRALINE [Concomitant]
     Indication: DEPRESSION
     Dosage: 50 MG, UNK

REACTIONS (3)
  - ANXIETY [None]
  - DEPRESSION [None]
  - NERVOUSNESS [None]
